FAERS Safety Report 23522743 (Version 2)
Quarter: 2024Q2

REPORT INFORMATION
  Report Type: Spontaneous
  Country: US (occurrence: US)
  Receive Date: 20240214
  Receipt Date: 20240430
  Transmission Date: 20240715
  Serious: Yes (Hospitalization, Other)
  Sender: FDA-Public Use
  Company Number: US-SK LIFE SCIENCE, INC.-SKPVG-2024-000195

PATIENT

DRUGS (8)
  1. XCOPRI [Suspect]
     Active Substance: CENOBAMATE
     Indication: Epilepsy
     Dosage: UNK
     Route: 048
  2. XCOPRI [Suspect]
     Active Substance: CENOBAMATE
     Indication: Partial seizures
     Dosage: 200 MILLIGRAM, QD
     Route: 048
     Dates: start: 20230228, end: 20240130
  3. XCOPRI [Suspect]
     Active Substance: CENOBAMATE
     Indication: Seizure
     Dosage: 200 MILLIGRAM, QD
     Route: 048
     Dates: start: 20240206
  4. DILANTIN [Suspect]
     Active Substance: PHENYTOIN
     Indication: Product used for unknown indication
     Dosage: 200 MILLIGRAM, QD
     Route: 048
     Dates: start: 20230831
  5. LORAZEPAM [Concomitant]
     Active Substance: LORAZEPAM
     Indication: Seizure
     Dosage: 2 MILLIGRAM, PRN
     Route: 048
     Dates: start: 20230412
  6. APTIOM [Concomitant]
     Active Substance: ESLICARBAZEPINE ACETATE
     Indication: Product used for unknown indication
     Dosage: 400 MILLIGRAM, QD
     Route: 048
     Dates: start: 20230411
  7. VALERIAN ROOT                      /01561603/ [Concomitant]
     Indication: Product used for unknown indication
     Dosage: 1000 MILLIGRAM, QD
     Route: 048
  8. GINKGO BILOBA LEAF EXTRACT [Concomitant]
     Active Substance: GINKGO BILOBA LEAF EXTRACT
     Indication: Product used for unknown indication
     Dosage: 120 MILLIGRAM, QD
     Route: 048

REACTIONS (10)
  - Mental status changes [Recovering/Resolving]
  - Metabolic encephalopathy [Recovering/Resolving]
  - Seizure [Recovered/Resolved]
  - Metabolic acidosis [Recovered/Resolved]
  - Drug level below therapeutic [Recovered/Resolved]
  - Hallucination [Recovering/Resolving]
  - Hypokalaemia [Recovered/Resolved]
  - Stress [Recovered/Resolved]
  - Product dose omission issue [Recovered/Resolved]
  - Living in residential institution [Not Recovered/Not Resolved]

NARRATIVE: CASE EVENT DATE: 20240131
